FAERS Safety Report 8836973 (Version 2)
Quarter: 2014Q1

REPORT INFORMATION
  Report Type: Spontaneous
  Country: US (occurrence: US)
  Receive Date: 20121012
  Receipt Date: 20140103
  Transmission Date: 20141002
  Serious: No
  Sender: FDA-Public Use
  Company Number: US-ASTRAZENECA-2012SE70676

PATIENT
  Age: 58 Year
  Sex: Female
  Weight: 53.5 kg

DRUGS (3)
  1. NEXIUM [Suspect]
     Indication: FLATULENCE
     Route: 048
     Dates: start: 2009, end: 20131219
  2. NEXIUM [Suspect]
     Indication: HIATUS HERNIA
     Route: 048
     Dates: start: 2009, end: 20131219
  3. LEVOTHYROXINE [Concomitant]
     Indication: HYPOTHYROIDISM
     Dosage: 25 MCG DAILY
     Route: 048

REACTIONS (5)
  - Dysphonia [Unknown]
  - Malaise [Unknown]
  - Intentional drug misuse [Unknown]
  - Intentional drug misuse [Unknown]
  - Off label use [Unknown]
